FAERS Safety Report 10586161 (Version 1)
Quarter: 2014Q4

REPORT INFORMATION
  Report Type: Spontaneous
  Country: GB (occurrence: GB)
  Receive Date: 20141116
  Receipt Date: 20141116
  Transmission Date: 20150529
  Serious: Yes (Death, Hospitalization)
  Sender: FDA-Public Use
  Company Number: GB-009507513-1411GBR006183

PATIENT
  Age: 79 Year
  Sex: Male

DRUGS (2)
  1. DEXAMETHASONE. [Suspect]
     Active Substance: DEXAMETHASONE
     Indication: PLASMA CELL MYELOMA
     Dosage: 20 MG, UNK ON DAYS 1, 2, 4, 5, 8, 9, 11 AND 12 OF THREE WEEK CYCLE.
     Route: 048
     Dates: start: 20130611, end: 20130920
  2. VELCADE [Suspect]
     Active Substance: BORTEZOMIB
     Indication: PLASMA CELL MYELOMA
     Dosage: 1.2 MG/M2, Q3W ON DAYS 1, 4, 8, 11 OF THREE WEEKS CYCLE.
     Route: 058
     Dates: start: 20130611, end: 20130920

REACTIONS (2)
  - Liver function test abnormal [Unknown]
  - Death [Fatal]

NARRATIVE: CASE EVENT DATE: 20131217
